FAERS Safety Report 5342343-3 (Version None)
Quarter: 2007Q2

REPORT INFORMATION
  Report Type: 
  Country: None (occurrence: None)
  Receive Date: 20070601
  Receipt Date: 20070525
  Transmission Date: 20071010
  Serious: Yes (Hospitalization)
  Sender: FDA-Public Use
  Company Number: JP-ASTRAZENECA-2007AP03144

PATIENT
  Age: 51 Year
  Sex: Male

DRUGS (9)
  1. CRESTOR [Suspect]
     Indication: HYPERCHOLESTEROLAEMIA
     Route: 048
     Dates: start: 20070516, end: 20070517
  2. OMEPRAL [Suspect]
     Route: 048
     Dates: start: 20070516, end: 20070517
  3. PLAVIX [Concomitant]
     Route: 048
     Dates: start: 20070516, end: 20070517
  4. DIOVAN [Concomitant]
     Route: 048
     Dates: start: 20070516, end: 20070517
  5. ASPIRIN [Concomitant]
  6. TICLOPIDINE HCL [Concomitant]
  7. TANATRIL [Concomitant]
  8. PARIET [Concomitant]
  9. LIPITOR [Concomitant]

REACTIONS (1)
  - NEPHRITIS INTERSTITIAL [None]
